FAERS Safety Report 21432542 (Version 1)
Quarter: 2022Q4

REPORT INFORMATION
  Report Type: Report from Study
  Country: US (occurrence: US)
  Receive Date: 20221010
  Receipt Date: 20221010
  Transmission Date: 20230113
  Serious: Yes (Other)
  Sender: FDA-Public Use
  Company Number: US-BIOGEN-2022BI01156310

PATIENT

DRUGS (1)
  1. TYSABRI [Suspect]
     Active Substance: NATALIZUMAB
     Indication: Multiple sclerosis
     Route: 050

REACTIONS (13)
  - Neoplasm malignant [Unknown]
  - Multiple allergies [Unknown]
  - Arthritis [Unknown]
  - Back disorder [Unknown]
  - Constipation [Unknown]
  - Endometriosis [Unknown]
  - Fibromyalgia [Unknown]
  - Migraine [Unknown]
  - Incontinence [Unknown]
  - Thyroid disorder [Unknown]
  - Pain in extremity [Unknown]
  - Myalgia [Unknown]
  - Urinary tract infection [Unknown]
